FAERS Safety Report 24769425 (Version 2)
Quarter: 2025Q2

REPORT INFORMATION
  Report Type: Spontaneous
  Country: US (occurrence: US)
  Receive Date: 20241224
  Receipt Date: 20250522
  Transmission Date: 20250716
  Serious: No
  Sender: NORDIC PHARMA
  Company Number: US-NORIDC PHARMA, INC-2024US004011

PATIENT

DRUGS (1)
  1. TIMOLOL MALEATE [Suspect]
     Active Substance: TIMOLOL MALEATE
     Indication: Glaucoma
     Route: 047
     Dates: start: 20241026

REACTIONS (3)
  - Eye irritation [Recovered/Resolved]
  - Thermal burn [Recovered/Resolved]
  - Ocular hyperaemia [Recovered/Resolved]

NARRATIVE: CASE EVENT DATE: 20241026
